FAERS Safety Report 7565558-2 (Version None)
Quarter: 2011Q2

REPORT INFORMATION
  Report Type: 
  Country: None (occurrence: None)
  Receive Date: 20110615
  Receipt Date: 20110608
  Transmission Date: 20111010
  Serious: Yes (Hospitalization)
  Sender: FDA-Public Use
  Company Number: FUR-11-02

PATIENT
  Age: 65 Year
  Sex: Male

DRUGS (4)
  1. FUROSEMIDE [Suspect]
     Dosage: 320MG, ORAL
     Route: 048
  2. SPIRONOLACTONE [Concomitant]
  3. METOPROLOL TARTRATE [Concomitant]
  4. BENDROFLUMETHIAZIDE [Concomitant]

REACTIONS (2)
  - RENAL FAILURE ACUTE [None]
  - MYOCARDIAL INFARCTION [None]
